FAERS Safety Report 7001291-3 (Version None)
Quarter: 2010Q3

REPORT INFORMATION
  Report Type: 
  Country: None (occurrence: None)
  Receive Date: 20100920
  Receipt Date: 20100510
  Transmission Date: 20110219
  Serious: No
  Sender: FDA-Public Use
  Company Number: US-ASTRAZENECA-2010SE21157

PATIENT
  Age: 71 Year
  Sex: Male
  Weight: 87.5 kg

DRUGS (2)
  1. SEROQUEL XR [Suspect]
     Indication: SOMNOLENCE
     Route: 048
  2. SEROQUEL XR [Suspect]
     Route: 048
     Dates: start: 20100208

REACTIONS (3)
  - HYPERVENTILATION [None]
  - MIDDLE INSOMNIA [None]
  - PANIC ATTACK [None]
